FAERS Safety Report 11506706 (Version 2)
Quarter: 2015Q4

REPORT INFORMATION
  Report Type: Report from Study
  Country: US (occurrence: US)
  Receive Date: 20150915
  Receipt Date: 20151027
  Transmission Date: 20160304
  Serious: Yes (Other)
  Sender: FDA-Public Use
  Company Number: US-ROCHE-1630409

PATIENT
  Age: 71 Year
  Sex: Male

DRUGS (2)
  1. OFEV [Concomitant]
     Active Substance: NINTEDANIB
     Indication: IDIOPATHIC PULMONARY FIBROSIS
     Route: 048
  2. ESBRIET [Suspect]
     Active Substance: PIRFENIDONE
     Indication: IDIOPATHIC PULMONARY FIBROSIS
     Dosage: 3 PILLS TID
     Route: 048

REACTIONS (5)
  - Photosensitivity reaction [Unknown]
  - Weight decreased [Unknown]
  - Decreased appetite [Unknown]
  - Hypophagia [Unknown]
  - Fatigue [Unknown]
